FAERS Safety Report 25483595 (Version 2)
Quarter: 2025Q3

REPORT INFORMATION
  Report Type: Spontaneous
  Country: PH (occurrence: PH)
  Receive Date: 20250626
  Receipt Date: 20250715
  Transmission Date: 20251021
  Serious: Yes (Other)
  Sender: AMGEN
  Company Number: PH-AMGEN-PHLSP2025119615

PATIENT
  Age: 63 Year
  Sex: Female

DRUGS (1)
  1. XGEVA [Suspect]
     Active Substance: DENOSUMAB
     Indication: Breast cancer metastatic
     Route: 065
     Dates: start: 202303

REACTIONS (3)
  - Fall [Unknown]
  - Atypical femur fracture [Unknown]
  - Gait disturbance [Unknown]

NARRATIVE: CASE EVENT DATE: 20250529
